FAERS Safety Report 17780562 (Version 2)
Quarter: 2020Q3

REPORT INFORMATION
  Report Type: Spontaneous
  Country: JP (occurrence: JP)
  Receive Date: 20200514
  Receipt Date: 20200714
  Transmission Date: 20201102
  Serious: Yes (Other)
  Sender: FDA-Public Use
  Company Number: JP-TEVA-2020-JP-003243J

PATIENT
  Age: 59 Year
  Sex: Female

DRUGS (2)
  1. METOCLOPRAMIDE TABLET 5MG TEVA [Suspect]
     Active Substance: METOCLOPRAMIDE
     Indication: NAUSEA
     Dosage: 15 MILLIGRAM DAILY;
     Route: 048
     Dates: start: 20200425
  2. METOCLOPRAMIDE TABLET 5MG TEVA [Suspect]
     Active Substance: METOCLOPRAMIDE
     Indication: DIZZINESS

REACTIONS (1)
  - Altered state of consciousness [Recovered/Resolved]

NARRATIVE: CASE EVENT DATE: 202004
